FAERS Safety Report 10245110 (Version 1)
Quarter: 2014Q2

REPORT INFORMATION
  Report Type: Report from Study
  Country: US (occurrence: US)
  Receive Date: 20140618
  Receipt Date: 20140618
  Transmission Date: 20141212
  Serious: Yes (Hospitalization, Other)
  Sender: FDA-Public Use
  Company Number: US-ASTRAZENECA-2014SE41229

PATIENT
  Age: 68 Year
  Sex: Male
  Weight: 129.3 kg

DRUGS (17)
  1. ATENOLOL [Suspect]
     Indication: BLOOD PRESSURE
     Route: 048
     Dates: start: 2011
  2. LISINOPRIL [Suspect]
     Indication: BLOOD PRESSURE
     Route: 048
     Dates: start: 2011
  3. PRILOSEC DELAYED RELEASE [Suspect]
     Indication: GASTRIC DISORDER
     Route: 048
     Dates: start: 201404
  4. BRILINTA [Suspect]
     Indication: STENT PLACEMENT
     Route: 048
     Dates: start: 201404, end: 20140531
  5. TRAZODONE [Concomitant]
     Indication: DEPRESSION
     Route: 048
  6. TRAZODONE [Concomitant]
     Indication: INSOMNIA
     Route: 048
  7. XANAX [Concomitant]
     Indication: DEPRESSION
     Route: 048
  8. XANAX [Concomitant]
     Indication: ANXIETY
     Route: 048
  9. CYMBALTA [Concomitant]
     Indication: DEPRESSION
     Route: 048
     Dates: start: 2011, end: 201403
  10. DULOXETINE [Concomitant]
     Indication: DEPRESSION
     Route: 048
     Dates: start: 201403
  11. PRAVASTATIN [Concomitant]
     Indication: BLOOD CHOLESTEROL INCREASED
     Route: 048
     Dates: start: 2011
  12. NORVASC [Concomitant]
     Indication: GASTRIC DISORDER
     Route: 048
     Dates: start: 201404
  13. DEPLIN [Concomitant]
     Indication: VITAMIN SUPPLEMENTATION
     Route: 048
     Dates: start: 2011
  14. ASPIRIN [Concomitant]
     Indication: DEPRESSION
     Route: 048
     Dates: start: 2011
  15. LURASIDONE [Concomitant]
     Indication: DEPRESSION
     Route: 048
     Dates: start: 2014
  16. LURASIDONE [Concomitant]
     Indication: ANXIETY
     Route: 048
     Dates: start: 2014
  17. PROZAC [Concomitant]
     Route: 065

REACTIONS (7)
  - Depression [Unknown]
  - Dyspnoea [Recovering/Resolving]
  - Dyspnoea exertional [Unknown]
  - Rotator cuff syndrome [Unknown]
  - Herpes zoster [Unknown]
  - Migraine [Unknown]
  - Gastric disorder [Unknown]
